FAERS Safety Report 20324987 (Version 2)
Quarter: 2022Q2

REPORT INFORMATION
  Report Type: Spontaneous
  Country: US (occurrence: US)
  Receive Date: 20220111
  Receipt Date: 20220416
  Transmission Date: 20220721
  Serious: Yes (Hospitalization, Other)
  Sender: FDA-Public Use
  Company Number: US-JNJFOC-20220110116

PATIENT
  Sex: Male

DRUGS (1)
  1. REMICADE [Suspect]
     Active Substance: INFLIXIMAB
     Indication: Ankylosing spondylitis
     Route: 042
     Dates: start: 2015

REACTIONS (2)
  - Pneumonia bacterial [Unknown]
  - Sinusitis bacterial [Not Recovered/Not Resolved]

NARRATIVE: CASE EVENT DATE: 20211201
